FAERS Safety Report 10038150 (Version 1)
Quarter: 2014Q1

REPORT INFORMATION
  Report Type: Spontaneous
  Country: US (occurrence: None)
  Receive Date: 20140325
  Receipt Date: 20140325
  Transmission Date: 20141002
  Serious: Yes (Other)
  Sender: FDA-Public Use
  Company Number: None

PATIENT
  Age: 25 Year
  Sex: Male

DRUGS (2)
  1. BUPROPION [Suspect]
     Indication: PRODUCT SUBSTITUTION ISSUE
     Dosage: 1 PILL QD QD ORAL
     Route: 048
  2. BUPROPION [Concomitant]

REACTIONS (5)
  - Drug effect decreased [None]
  - Product substitution issue [None]
  - Food craving [None]
  - Weight increased [None]
  - Initial insomnia [None]
